FAERS Safety Report 9693908 (Version 2)
Quarter: 2013Q4

REPORT INFORMATION
  Report Type: Spontaneous
  Country: US (occurrence: US)
  Receive Date: 20131118
  Receipt Date: 20131211
  Transmission Date: 20140711
  Serious: Yes (Death, Hospitalization, Other)
  Sender: FDA-Public Use
  Company Number: US-PFIZER INC-2013324388

PATIENT
  Age: 65 Year
  Sex: Male
  Weight: 102 kg

DRUGS (13)
  1. XALKORI [Suspect]
     Indication: NON-SMALL CELL LUNG CANCER
     Dosage: 250 MG, 2X/DAY
     Route: 048
     Dates: start: 20130222, end: 20131028
  2. PREDNISONE [Concomitant]
     Dosage: 40 MG, 1X/DAY
     Dates: start: 20131024, end: 20131029
  3. PREDNISONE [Concomitant]
     Dosage: 30 MG, 1X/DAY
     Dates: start: 20131029
  4. XANAX [Concomitant]
     Dosage: 0.25 MG, EVERY 6 HOURS
  5. BENAZEPRIL [Concomitant]
     Dosage: 5 MG, 1X/DAY
  6. CARDIZEM CD [Concomitant]
     Indication: ANXIETY
     Dosage: 240 MG, 1X/DAY
  7. FUROSEMIDE [Concomitant]
     Dosage: 20 MG, 1X/DAY
  8. IPRATROPIUM BROMIDE/SALBUTAMOL [Concomitant]
     Dosage: 20/100 UG (2 PUFFS), 4X/DAY
  9. LANTUS [Concomitant]
     Dosage: 20 UNITS, 1X/DAY
     Route: 058
  10. LANTUS [Concomitant]
     Dosage: 100 IU/ML, UNK
     Route: 058
  11. NOVOLOG FLEXPEN [Concomitant]
     Dosage: 9 UNITS, 3X/DAY
  12. NOVOLOG FLEXPEN [Concomitant]
     Dosage: 100 IU/ML, UNK
     Route: 058
  13. KLONOPIN [Concomitant]
     Dosage: UNK

REACTIONS (32)
  - Death [Fatal]
  - Pneumonia [Not Recovered/Not Resolved]
  - Pneumonitis [Unknown]
  - Atrial fibrillation [Unknown]
  - Diabetes mellitus inadequate control [Not Recovered/Not Resolved]
  - Abasia [Not Recovered/Not Resolved]
  - Neutropenia [Unknown]
  - Haemorrhagic diathesis [Unknown]
  - Contusion [Unknown]
  - Psychomotor hyperactivity [Not Recovered/Not Resolved]
  - Asthenia [Not Recovered/Not Resolved]
  - Oedema [Unknown]
  - Myopathy [Unknown]
  - Pleural effusion [Unknown]
  - Thrombocytopenia [Unknown]
  - Nausea [Unknown]
  - Vomiting [Unknown]
  - Vitreous floaters [Unknown]
  - Constipation [Unknown]
  - Rash [Unknown]
  - Oedema peripheral [Unknown]
  - Weight decreased [Unknown]
  - Pain [Not Recovered/Not Resolved]
  - Pollakiuria [Unknown]
  - Musculoskeletal stiffness [Unknown]
  - Sinus congestion [Unknown]
  - Myalgia [Unknown]
  - Joint swelling [Unknown]
  - Arthralgia [Unknown]
  - Dizziness [Unknown]
  - Depression [Unknown]
  - Back pain [Unknown]
